FAERS Safety Report 11719588 (Version 2)
Quarter: 2015Q4

REPORT INFORMATION
  Report Type: Spontaneous
  Country: US (occurrence: US)
  Receive Date: 20151110
  Receipt Date: 20151125
  Transmission Date: 20160304
  Serious: Yes (Hospitalization, Other)
  Sender: FDA-Public Use
  Company Number: US-ARBOR PHARMACEUTICALS, LLC-US-2015ARB002275

PATIENT
  Age: 36 Year
  Sex: Male

DRUGS (1)
  1. LAMOTRIGINE. [Suspect]
     Active Substance: LAMOTRIGINE
     Indication: PRODUCT USED FOR UNKNOWN INDICATION
     Dosage: UNK

REACTIONS (12)
  - Muscle spasticity [Recovering/Resolving]
  - Mental status changes [Not Recovered/Not Resolved]
  - Intentional overdose [Recovered/Resolved with Sequelae]
  - Dyskinesia [Recovering/Resolving]
  - Electrocardiogram QT prolonged [Recovered/Resolved]
  - Generalised tonic-clonic seizure [Recovered/Resolved with Sequelae]
  - Sinus tachycardia [None]
  - Critical illness myopathy [Recovering/Resolving]
  - Quadriplegia [Recovering/Resolving]
  - Status epilepticus [Recovered/Resolved with Sequelae]
  - Cardiotoxicity [Recovered/Resolved with Sequelae]
  - Electrocardiogram QRS complex prolonged [Recovered/Resolved]
